FAERS Safety Report 6647524-4 (Version None)
Quarter: 2010Q1

REPORT INFORMATION
  Report Type: 
  Country: None (occurrence: None)
  Receive Date: 20100323
  Receipt Date: 20100323
  Transmission Date: 20100710
  Serious: No
  Sender: FDA-Public Use
  Company Number: None

PATIENT
  Age: 78 Year
  Sex: Male
  Weight: 89.09 kg

DRUGS (1)
  1. VANCOMYCIN [Suspect]
     Dosage: 1 GM ONCE IV
     Route: 042
     Dates: start: 20081105, end: 20081105

REACTIONS (1)
  - HYPOTENSION [None]
